FAERS Safety Report 6713456-6 (Version None)
Quarter: 2010Q2

REPORT INFORMATION
  Report Type: 
  Country: None (occurrence: None)
  Receive Date: 20100504
  Receipt Date: 20100422
  Transmission Date: 20101027
  Serious: Yes (Other)
  Sender: FDA-Public Use
  Company Number: 167-20484-09111578

PATIENT
  Sex: Female
  Weight: 2.02 kg

DRUGS (13)
  1. INNOHEP [Suspect]
     Indication: DRUG EXPOSURE DURING PREGNANCY
     Dosage: TRANSPLACENTAL
     Route: 064
     Dates: start: 20000427, end: 20000925
  2. METHADONE HCL [Concomitant]
  3. BECONASE [Concomitant]
  4. CORTIVENT (BUDESONIDE) [Concomitant]
  5. KAPAKE (CODEINE PHOSPHATE, PARACETAMOL) [Concomitant]
  6. NIFEDIPINE [Concomitant]
  7. CEPHALEXIN [Concomitant]
  8. BETAMETHASONE [Concomitant]
  9. MEPERIDINE HCL [Concomitant]
  10. ACETAMINOPHEN [Concomitant]
  11. METRONIDAZOLE [Concomitant]
  12. MAXOLON [Concomitant]
  13. SYNTOMETRINE (OXYTOCIN, ERGOMETRINE) [Concomitant]

REACTIONS (2)
  - MATERNAL DRUGS AFFECTING FOETUS [None]
  - PREMATURE BABY [None]
